FAERS Safety Report 5691982-9 (Version None)
Quarter: 2008Q2

REPORT INFORMATION
  Report Type: 
  Country: None (occurrence: None)
  Receive Date: 20080402
  Receipt Date: 20080327
  Transmission Date: 20081010
  Serious: Yes (Other)
  Sender: FDA-Public Use
  Company Number: GR-JNJFOC-20080306394

PATIENT
  Age: 26 Year
  Sex: Female

DRUGS (1)
  1. TOPAMAC [Suspect]
     Indication: BIPOLAR DISORDER
     Route: 048

REACTIONS (1)
  - WHITE BLOOD CELL COUNT DECREASED [None]
